FAERS Safety Report 12076455 (Version 2)
Quarter: 2016Q1

REPORT INFORMATION
  Report Type: Spontaneous
  Country: US (occurrence: US)
  Receive Date: 20160215
  Receipt Date: 20160219
  Transmission Date: 20160526
  Serious: Yes (Other)
  Sender: FDA-Public Use
  Company Number: US-RECKITT BENCKISER HEALTHCARE INT LIMITED-RB-81677-2016

PATIENT
  Age: 47 Year
  Sex: Female

DRUGS (1)
  1. MUCINEX DM MAXIMUM STRENGTH [Suspect]
     Active Substance: DEXTROMETHORPHAN HYDROBROMIDE\GUAIFENESIN
     Indication: PRODUCT USED FOR UNKNOWN INDICATION
     Dosage: 1200 MG, BID
     Route: 065
     Dates: start: 20160118, end: 20160120

REACTIONS (4)
  - Cough [Recovered/Resolved]
  - Muscle rupture [Recovered/Resolved]
  - Internal haemorrhage [Recovered/Resolved]
  - Arterial rupture [Recovered/Resolved]

NARRATIVE: CASE EVENT DATE: 20160118
